FAERS Safety Report 10855046 (Version 1)
Quarter: 2015Q1

REPORT INFORMATION
  Report Type: Spontaneous
  Country: US (occurrence: None)
  Receive Date: 20150218
  Receipt Date: 20150218
  Transmission Date: 20150721
  Serious: No
  Sender: FDA-Public Use
  Company Number: None

PATIENT
  Age: 32 Year
  Sex: Female
  Weight: 58.97 kg

DRUGS (6)
  1. FLONASE [Concomitant]
     Active Substance: FLUTICASONE PROPIONATE
  2. WELLBUTRIN SR [Suspect]
     Active Substance: BUPROPION HYDROCHLORIDE
     Indication: ANXIETY
     Route: 048
     Dates: start: 20150107, end: 20150130
  3. ZYRTEC [Concomitant]
     Active Substance: CETIRIZINE HYDROCHLORIDE
  4. WELLBUTRIN SR [Suspect]
     Active Substance: BUPROPION HYDROCHLORIDE
     Indication: STRESS
     Route: 048
     Dates: start: 20150107, end: 20150130
  5. MIRENA [Concomitant]
     Active Substance: LEVONORGESTREL
  6. CLARITIN [Concomitant]
     Active Substance: LORATADINE

REACTIONS (6)
  - Deafness transitory [None]
  - Tinnitus [None]
  - Deafness unilateral [None]
  - Exposure during pregnancy [None]
  - Maternal exposure before pregnancy [None]
  - Urticaria chronic [None]

NARRATIVE: CASE EVENT DATE: 20150119
